FAERS Safety Report 5374532-6 (Version None)
Quarter: 2007Q2

REPORT INFORMATION
  Report Type: 
  Country: None (occurrence: None)
  Receive Date: 20070629
  Receipt Date: 20070625
  Transmission Date: 20071010
  Serious: Yes (Other)
  Sender: FDA-Public Use
  Company Number: TW-BRISTOL-MYERS SQUIBB COMPANY-13825427

PATIENT
  Age: 9 Year
  Sex: Male

DRUGS (6)
  1. IFOSFAMIDE [Suspect]
     Indication: BONE SARCOMA
     Route: 041
     Dates: start: 20040101, end: 20050701
  2. METHOTREXATE [Suspect]
     Indication: BONE SARCOMA
     Dates: start: 20040101
  3. CISPLATIN [Suspect]
     Indication: BONE SARCOMA
     Dates: start: 20040101
  4. DOXORUBICIN HCL [Suspect]
     Indication: BONE SARCOMA
     Dates: start: 20040101
  5. AMPHOTERICIN B [Concomitant]
     Indication: CANDIDIASIS
     Dates: start: 20050101
  6. MEROPENEM [Concomitant]
     Indication: FEBRILE NEUTROPENIA

REACTIONS (3)
  - COLITIS [None]
  - FEBRILE NEUTROPENIA [None]
  - PANCREATITIS ACUTE [None]
